FAERS Safety Report 7084333-9 (Version None)
Quarter: 2010Q4

REPORT INFORMATION
  Report Type: 
  Country: None (occurrence: None)
  Receive Date: 20101104
  Receipt Date: 20101102
  Transmission Date: 20110411
  Serious: Yes (Hospitalization, Disabling, Other)
  Sender: FDA-Public Use
  Company Number: US-PFIZER INC-2010095344

PATIENT
  Sex: Male

DRUGS (6)
  1. CHANTIX [Suspect]
     Indication: SMOKING CESSATION THERAPY
     Dosage: ONE STARTING MONTH PACK AND TWO CONTINUING MONTH PACK
     Dates: start: 20070423, end: 20070701
  2. DILAUDID [Concomitant]
     Indication: PAIN
     Dosage: UNK
     Dates: start: 20060101, end: 20090101
  3. OXYCODONE [Concomitant]
     Indication: PAIN
     Dosage: UNK
     Dates: start: 20060101, end: 20090101
  4. LISINOPRIL [Concomitant]
     Indication: HYPERTENSION
     Dosage: UNK
     Dates: start: 20060101
  5. LIPITOR [Concomitant]
     Indication: BLOOD CHOLESTEROL INCREASED
     Dosage: UNK
     Dates: start: 20060101
  6. NOVOLOG [Concomitant]
     Indication: DIABETES MELLITUS
     Dosage: UNK
     Dates: start: 20060101, end: 20090101

REACTIONS (13)
  - ANXIETY [None]
  - CONVULSION [None]
  - DEPRESSION [None]
  - FALL [None]
  - HALLUCINATION, AUDITORY [None]
  - HALLUCINATION, VISUAL [None]
  - INTENTIONAL OVERDOSE [None]
  - LOSS OF CONSCIOUSNESS [None]
  - PANIC ATTACK [None]
  - PARANOIA [None]
  - PERSONALITY DISORDER [None]
  - PSYCHOTIC DISORDER [None]
  - SUICIDE ATTEMPT [None]
